FAERS Safety Report 9810696 (Version 2)
Quarter: 2014Q1

REPORT INFORMATION
  Report Type: Spontaneous
  Country: US (occurrence: US)
  Receive Date: 20140110
  Receipt Date: 20140110
  Transmission Date: 20141002
  Serious: Yes (Death, Hospitalization, Other)
  Sender: FDA-Public Use
  Company Number: US-SANOFI-AVENTIS-2012SA066122

PATIENT
  Age: 75 Year
  Sex: Male

DRUGS (30)
  1. PLAVIX [Suspect]
     Route: 048
  2. ASPIRIN [Suspect]
     Dosage: MORE THEN 100 MG
     Dates: start: 20111222
  3. ASPIRIN [Suspect]
     Dosage: MORE THEN 100 MG
     Dates: start: 20110707
  4. ASPIRIN [Suspect]
     Dosage: MORE THEN 100 MG
     Dates: start: 20110324
  5. ASPIRIN [Suspect]
     Dosage: MORE THEN 100 MG
     Dates: start: 20111114
  6. ASPIRIN [Suspect]
     Dosage: MORE THEN 100 MG
     Dates: start: 20110919
  7. ASPIRIN [Suspect]
     Route: 065
  8. PLACEBO [Suspect]
     Indication: TYPE 2 DIABETES MELLITUS
     Route: 065
     Dates: start: 20110324, end: 20110517
  9. METFORMIN [Concomitant]
     Indication: TYPE 2 DIABETES MELLITUS
  10. GLYBURIDE [Concomitant]
     Indication: TYPE 2 DIABETES MELLITUS
  11. ACE INHIBITOR NOS [Concomitant]
     Dates: start: 20111222
  12. ACE INHIBITOR NOS [Concomitant]
     Dates: start: 20111114
  13. ACE INHIBITOR NOS [Concomitant]
     Dates: start: 20110919
  14. ACE INHIBITOR NOS [Concomitant]
     Dates: start: 20110707
  15. ACE INHIBITOR NOS [Concomitant]
     Dates: start: 20110324
  16. DIURETICS [Concomitant]
     Dates: start: 20110324
  17. DIURETICS [Concomitant]
     Dates: start: 20110707
  18. DIURETICS [Concomitant]
     Dates: start: 20110919
  19. DIURETICS [Concomitant]
     Dates: start: 20111114
  20. DIURETICS [Concomitant]
     Dates: start: 20111222
  21. OXYCODONE [Concomitant]
     Dates: start: 20110509, end: 20120512
  22. ALBUTEROL W/IPRATROPIUM [Concomitant]
     Dates: start: 20110509, end: 20120512
  23. LEVAQUIN [Concomitant]
     Dates: start: 20110509, end: 20110516
  24. ALBUTEROL [Concomitant]
     Dates: start: 20110509, end: 20110512
  25. ERYTHROMYCIN [Concomitant]
     Dates: start: 20110509, end: 20110516
  26. POLYMYXIN B [Concomitant]
     Dates: start: 20110509, end: 20110516
  27. TEMAZEPAM [Concomitant]
     Dates: start: 20110509, end: 20110516
  28. PLATELET AGGREGATION INHIBITORS [Concomitant]
  29. BETA BLOCKING AGENTS [Concomitant]
  30. ALL OTHER THERAPEUTIC PRODUCTS [Concomitant]

REACTIONS (4)
  - Gastric ulcer [Recovering/Resolving]
  - Cerebrovascular accident [Fatal]
  - Gastrointestinal haemorrhage [Recovering/Resolving]
  - Haemorrhagic anaemia [Recovering/Resolving]
